FAERS Safety Report 13861928 (Version 11)
Quarter: 2018Q4

REPORT INFORMATION
  Report Type: Report from Study
  Country: US (occurrence: US)
  Receive Date: 20170811
  Receipt Date: 20181210
  Transmission Date: 20190204
  Serious: Yes (Hospitalization, Other)
  Sender: FDA-Public Use
  Company Number: US-ACTELION-A-US2016-141585

PATIENT
  Age: 61 Year
  Sex: Female

DRUGS (1)
  1. OPSUMIT [Suspect]
     Active Substance: MACITENTAN
     Indication: PULMONARY HYPERTENSION
     Dosage: 10 MG, QD
     Route: 048
     Dates: start: 20151130, end: 20180426

REACTIONS (34)
  - Gastrooesophageal reflux disease [Recovered/Resolved]
  - Pneumonia [Not Recovered/Not Resolved]
  - Seasonal allergy [Unknown]
  - Vomiting [Recovered/Resolved]
  - Dyspnoea [Unknown]
  - Decreased appetite [Unknown]
  - Sinusitis [Not Recovered/Not Resolved]
  - Lymphadenopathy [Not Recovered/Not Resolved]
  - Lacrimation increased [Unknown]
  - Nausea [Recovered/Resolved]
  - Head discomfort [Not Recovered/Not Resolved]
  - Rectal haemorrhage [Recovered/Resolved]
  - Sinus congestion [Not Recovered/Not Resolved]
  - Infection [Recovered/Resolved]
  - Abdominal pain [Recovered/Resolved]
  - Hypotension [Not Recovered/Not Resolved]
  - Pulmonary hypertension [Unknown]
  - Constipation [Recovered/Resolved]
  - Thrombocytopenia [Recovering/Resolving]
  - Respiratory failure [Unknown]
  - Aortic stenosis [Unknown]
  - Dyspnoea exertional [Recovered/Resolved]
  - Hypervolaemia [Unknown]
  - Paranasal sinus discomfort [Not Recovered/Not Resolved]
  - Malaise [Not Recovered/Not Resolved]
  - Troponin increased [Recovering/Resolving]
  - Diarrhoea [Recovered/Resolved]
  - Dialysis [Unknown]
  - Pericardial effusion [Not Recovered/Not Resolved]
  - End stage renal disease [Recovering/Resolving]
  - Acute respiratory failure [Unknown]
  - Sleep apnoea syndrome [Unknown]
  - Ear pain [Not Recovered/Not Resolved]
  - Rhinalgia [Not Recovered/Not Resolved]

NARRATIVE: CASE EVENT DATE: 20160309
